FAERS Safety Report 9943215 (Version 2)
Quarter: 2020Q3

REPORT INFORMATION
  Report Type: Spontaneous
  Country: NL (occurrence: NL)
  Receive Date: 20140303
  Receipt Date: 20200725
  Transmission Date: 20201103
  Serious: Yes (Other)
  Sender: FDA-Public Use
  Company Number: PHHY2014NL023540

PATIENT
  Age: 82 Year
  Sex: Male

DRUGS (2)
  1. AMOXICILLIN?CLAVULANIC ACID [Suspect]
     Active Substance: AMOXICILLIN\CLAVULANIC ACID
     Indication: SYSTEMIC INFLAMMATORY RESPONSE SYNDROME
     Dosage: IMMEDIATE ADR ONSET
     Route: 042
  2. AMOXICILLIN?CLAVULANIC ACID [Suspect]
     Active Substance: AMOXICILLIN\CLAVULANIC ACID
     Indication: OFF LABEL USE

REACTIONS (7)
  - Electrocardiogram ST segment elevation [Recovering/Resolving]
  - Kounis syndrome [Recovering/Resolving]
  - Cardio-respiratory arrest [Recovered/Resolved]
  - Arteriospasm coronary [Recovering/Resolving]
  - Rash erythematous [Recovering/Resolving]
  - Acute myocardial infarction [Recovering/Resolving]
  - Drug hypersensitivity [Recovering/Resolving]
